FAERS Safety Report 17171895 (Version 1)
Quarter: 2019Q4

REPORT INFORMATION
  Report Type: Spontaneous
  Country: US (occurrence: US)
  Receive Date: 20191126
  Receipt Date: 20191126
  Transmission Date: 20200122
  Serious: Yes (Hospitalization)
  Sender: FDA-Public Use
  Company Number: None

PATIENT
  Sex: Female

DRUGS (6)
  1. BENLYSTA [Suspect]
     Active Substance: BELIMUMAB
     Indication: PRODUCT USED FOR UNKNOWN INDICATION
     Dosage: ?          OTHER FREQUENCY:QWEEK ;?
     Route: 058
     Dates: start: 20190703
  2. CEPHALEXIN. [Concomitant]
     Active Substance: CEPHALEXIN
  3. COLCHICINE. [Concomitant]
     Active Substance: COLCHICINE
  4. HYDROCO/APAP [Concomitant]
     Active Substance: ACETAMINOPHEN\HYDROCODONE
  5. ESCITALOPRAM [Concomitant]
     Active Substance: ESCITALOPRAM OXALATE
  6. HYDROXYCHLOR [Concomitant]
     Active Substance: HYDROXYCHLOROQUINE

REACTIONS (5)
  - Alopecia [None]
  - Pericarditis [None]
  - Arthralgia [None]
  - Condition aggravated [None]
  - Butterfly rash [None]
